FAERS Safety Report 14668157 (Version 1)
Quarter: 2018Q1

REPORT INFORMATION
  Report Type: Spontaneous
  Country: US (occurrence: US)
  Receive Date: 20180322
  Receipt Date: 20180322
  Transmission Date: 20180509
  Serious: Yes (Other)
  Sender: FDA-Public Use
  Company Number: US-ROCHE-2088160

PATIENT
  Age: 16 Year
  Sex: Male
  Weight: 72.64 kg

DRUGS (2)
  1. TAMIFLU [Suspect]
     Active Substance: OSELTAMIVIR PHOSPHATE
     Indication: INFLUENZA
     Dosage: ONGOING: NO
     Route: 048
     Dates: start: 20180306
  2. TYLENOL [Concomitant]
     Active Substance: ACETAMINOPHEN
     Dosage: UNKNOWN
     Route: 065

REACTIONS (7)
  - Vomiting [Unknown]
  - Fall [Unknown]
  - Disorientation [Unknown]
  - Pyrexia [Unknown]
  - Hypersensitivity [Unknown]
  - Drug ineffective [Unknown]
  - Loss of consciousness [Unknown]

NARRATIVE: CASE EVENT DATE: 20180307
